FAERS Safety Report 12507317 (Version 1)
Quarter: 2016Q2

REPORT INFORMATION
  Report Type: Spontaneous
  Country: US (occurrence: US)
  Receive Date: 20160629
  Receipt Date: 20160629
  Transmission Date: 20160815
  Serious: Yes (Death)
  Sender: FDA-Public Use
  Company Number: US-TESARO INC.-TS50-00086-2016USA

PATIENT
  Age: 74 Year
  Sex: Female

DRUGS (2)
  1. VARUBI [Suspect]
     Active Substance: ROLAPITANT
     Indication: VOMITING
  2. VARUBI [Suspect]
     Active Substance: ROLAPITANT
     Indication: NAUSEA
     Route: 048

REACTIONS (1)
  - Death [Fatal]

NARRATIVE: CASE EVENT DATE: 20160501
